FAERS Safety Report 23686113 (Version 1)
Quarter: 2024Q1

REPORT INFORMATION
  Report Type: Spontaneous
  Country: US (occurrence: US)
  Receive Date: 20240329
  Receipt Date: 20240329
  Transmission Date: 20240410
  Serious: Yes (Hospitalization, Other)
  Sender: FDA-Public Use
  Company Number: US-SUN PHARMACEUTICAL INDUSTRIES LTD-2024R1-438786

PATIENT
  Age: 55 Year
  Sex: Female

DRUGS (9)
  1. LITHIUM [Suspect]
     Active Substance: LITHIUM
     Indication: Bipolar I disorder
     Route: 065
  2. BUPROPION [Suspect]
     Active Substance: BUPROPION
     Indication: Bipolar I disorder
     Dosage: 150 MILLIGRAM, DAILY
     Route: 065
  3. BUPROPION [Suspect]
     Active Substance: BUPROPION
     Dosage: 300 MILLIGRAM, DAILY
     Route: 065
  4. PROPRANOLOL [Suspect]
     Active Substance: PROPRANOLOL HYDROCHLORIDE
     Indication: Bipolar I disorder
     Dosage: 10 MILLIGRAM, DAILY
     Route: 065
  5. PROPRANOLOL [Suspect]
     Active Substance: PROPRANOLOL HYDROCHLORIDE
     Dosage: 20 MILLIGRAM, DAILY
     Route: 065
  6. CLOZAPINE [Suspect]
     Active Substance: CLOZAPINE
     Indication: Bipolar I disorder
     Dosage: 100 MILLIGRAM, DAILY
     Route: 065
  7. CLOZAPINE [Suspect]
     Active Substance: CLOZAPINE
     Dosage: 50 MILLIGRAM, DAILY
     Route: 065
  8. DEUTETRABENAZINE [Interacting]
     Active Substance: DEUTETRABENAZINE
     Indication: Bipolar I disorder
     Dosage: 12 MILLIGRAM, DAILY
     Route: 065
  9. DEUTETRABENAZINE [Interacting]
     Active Substance: DEUTETRABENAZINE
     Dosage: 24 MILLIGRAM, DAILY
     Route: 065

REACTIONS (10)
  - Toxicity to various agents [Unknown]
  - Drug interaction [Unknown]
  - Dizziness [Recovering/Resolving]
  - Ataxia [Recovering/Resolving]
  - Aphasia [Recovering/Resolving]
  - Tremor [Recovering/Resolving]
  - Dysarthria [Unknown]
  - Electrocardiogram QT prolonged [Recovering/Resolving]
  - Bradycardia [Recovering/Resolving]
  - Confusional state [Recovering/Resolving]
